FAERS Safety Report 4621354-7 (Version None)
Quarter: 2005Q1

REPORT INFORMATION
  Report Type: 
  Country: None (occurrence: None)
  Receive Date: 20050323
  Receipt Date: 20050323
  Transmission Date: 20050727
  Serious: Yes (Hospitalization)
  Sender: FDA-Public Use
  Company Number: None

PATIENT
  Sex: Male
  Weight: 81 kg

DRUGS (1)
  1. LISINOPRIL [Suspect]
     Indication: HYPERTENSION
     Dosage: 10MG   1 TAB QD   ORAL
     Route: 048
     Dates: start: 20041023, end: 20041123

REACTIONS (2)
  - ANGIONEUROTIC OEDEMA [None]
  - OROPHARYNGEAL SWELLING [None]
